FAERS Safety Report 8521293 (Version 3)
Quarter: 2012Q4

REPORT INFORMATION
  Report Type: 
  Country: BR (occurrence: BR)
  Receive Date: 20120419
  Receipt Date: 20121008
  Transmission Date: 20130627
  Serious: Yes (Other)
  Sender: FDA-Public Use
  Company Number: BR-PFIZER INC-2012092564

PATIENT
  Age: 33 Year
  Sex: Female
  Weight: 78 kg

DRUGS (11)
  1. ZOLOFT [Suspect]
     Indication: OBSESSIVE-COMPULSIVE DISORDER
     Dosage: 25 mg, 1x/day
     Route: 048
     Dates: start: 201204, end: 2012
  2. ZOLOFT [Suspect]
     Indication: DEPRESSION
     Dosage: 50 mg, 1x/day
     Route: 048
     Dates: start: 2012, end: 2012
  3. ZOLOFT [Suspect]
     Dosage: 100 mg, UNK
     Route: 048
     Dates: start: 2012, end: 2012
  4. ZOLOFT [Suspect]
     Dosage: 125 mg, UNK
     Route: 048
     Dates: start: 2012, end: 2012
  5. ZOLOFT [Suspect]
     Dosage: 150 mg, UNK
     Route: 048
     Dates: start: 2012
  6. FLUOXETINE HCL [Suspect]
     Dosage: UNK
  7. PANTOPRAZOLE [Concomitant]
     Indication: HIATUS HERNIA
     Dosage: 40mg, one tablet daily
  8. PANTOPRAZOLE [Concomitant]
     Indication: OESOPHAGITIS
  9. GELMAX [Concomitant]
     Indication: GASTRIC DISORDER
     Dosage: four tablets daily
  10. GELMAX [Concomitant]
     Indication: HIATUS HERNIA
  11. DIVEDRAT [Concomitant]
     Indication: HIATUS HERNIA
     Dosage: 400 mg, 1x/day

REACTIONS (11)
  - Nervousness [Unknown]
  - Throat tightness [Unknown]
  - Dysphagia [Unknown]
  - Dizziness [Not Recovered/Not Resolved]
  - Insomnia [Not Recovered/Not Resolved]
  - Tremor [Recovered/Resolved]
  - Nausea [Unknown]
  - Dyspepsia [Unknown]
  - Vision blurred [Unknown]
  - Somnolence [Not Recovered/Not Resolved]
  - Fatigue [Not Recovered/Not Resolved]
